FAERS Safety Report 9315733 (Version 5)
Quarter: 2014Q3

REPORT INFORMATION
  Report Type: Spontaneous
  Country: US (occurrence: US)
  Receive Date: 20130529
  Receipt Date: 20140824
  Transmission Date: 20150326
  Serious: Yes (Hospitalization, Other)
  Sender: FDA-Public Use
  Company Number: US-009507513-1305USA012405

PATIENT
  Sex: Female
  Weight: 159.64 kg

DRUGS (4)
  1. NUVARING [Suspect]
     Active Substance: ETHINYL ESTRADIOL\ETONOGESTREL
     Indication: MENORRHAGIA
     Dosage: UNK
     Route: 067
     Dates: start: 20110615, end: 20110903
  2. NUVARING [Suspect]
     Active Substance: ETHINYL ESTRADIOL\ETONOGESTREL
     Indication: MENSTRUATION IRREGULAR
     Dosage: UNK
     Route: 067
     Dates: start: 201009, end: 201012
  3. FERROUS SULFATE [Concomitant]
     Active Substance: FERROUS SULFATE\FERROUS SULFATE, DRIED
     Indication: IRON DEFICIENCY ANAEMIA
     Dosage: 1 MG, QD
     Route: 048
     Dates: start: 201005
  4. LISINOPRIL. [Concomitant]
     Active Substance: LISINOPRIL
     Indication: HYPERTENSION
     Dosage: 1 MG, QD
     Route: 048
     Dates: start: 201005

REACTIONS (20)
  - Gastrointestinal disorder [Unknown]
  - Off label use [Recovered/Resolved]
  - Renal failure acute [Recovered/Resolved]
  - Hypotension [Unknown]
  - Chest pain [Recovered/Resolved]
  - Hepatic steatosis [Unknown]
  - Pulmonary hypertension [Unknown]
  - Pulmonary embolism [Recovered/Resolved]
  - Cor pulmonale [Unknown]
  - Loss of consciousness [Unknown]
  - Liver function test abnormal [Recovered/Resolved]
  - Dehydration [Unknown]
  - Deep vein thrombosis [Recovered/Resolved]
  - Urinary tract infection [Recovered/Resolved]
  - Blood glucose increased [Recovered/Resolved]
  - Abdominal pain [Unknown]
  - White blood cell count increased [Recovered/Resolved]
  - Sleep apnoea syndrome [Unknown]
  - Non-immune heparin associated thrombocytopenia [Unknown]
  - Stress [Unknown]

NARRATIVE: CASE EVENT DATE: 20101124
